FAERS Safety Report 13366930 (Version 2)
Quarter: 2017Q2

REPORT INFORMATION
  Report Type: Report from Study
  Country: JP (occurrence: JP)
  Receive Date: 20170324
  Receipt Date: 20170406
  Transmission Date: 20170830
  Serious: Yes (Hospitalization, Other)
  Sender: FDA-Public Use
  Company Number: JP-AMGEN-JPNCT2017045079

PATIENT
  Age: 56 Year
  Sex: Male

DRUGS (15)
  1. DEXART [Concomitant]
     Active Substance: DEXAMETHASONE SODIUM PHOSPHATE
     Indication: GASTROINTESTINAL DISORDER
     Dosage: 6.6 MG, Q2WEEKS
     Route: 042
  2. CALCIUM LEVOFOLINATE [Concomitant]
     Active Substance: LEVOLEUCOVORIN CALCIUM
     Indication: COLON CANCER
     Dosage: 370 MG, Q2WEEKS
     Route: 041
     Dates: start: 20161222
  3. ELPLAT [Suspect]
     Active Substance: OXALIPLATIN
     Dosage: 120 MG, Q2WEEKS
     Route: 041
     Dates: start: 20170301, end: 20170301
  4. 5-FU [Concomitant]
     Active Substance: FLUOROURACIL
     Dosage: 4400 MG, Q2WEEKS
     Route: 041
     Dates: start: 20161222
  5. DEXART [Concomitant]
     Active Substance: DEXAMETHASONE SODIUM PHOSPHATE
     Indication: ALLERGY PROPHYLAXIS
  6. POLARAMINE [Concomitant]
     Active Substance: DEXCHLORPHENIRAMINE MALEATE
     Indication: ALLERGY PROPHYLAXIS
     Dosage: 5 MG, Q2WEEKS
     Route: 042
  7. MAGNESIUM OXIDE. [Concomitant]
     Active Substance: MAGNESIUM OXIDE
     Dosage: 990 MG, UNK
     Route: 048
  8. PANITUMUMAB [Suspect]
     Active Substance: PANITUMUMAB
     Indication: COLON CANCER
     Dosage: 460 MG, Q2WK
     Route: 041
     Dates: start: 20161222
  9. 5-FU [Concomitant]
     Active Substance: FLUOROURACIL
     Indication: COLON CANCER
     Dosage: 740 MG, Q2WK
     Route: 040
     Dates: start: 20161222
  10. ELPLAT [Suspect]
     Active Substance: OXALIPLATIN
     Indication: COLON CANCER
     Dosage: 155 MG, Q2WEEKS
     Route: 041
     Dates: start: 20161222
  11. FAMOTIDINE. [Concomitant]
     Active Substance: FAMOTIDINE
     Indication: PEPTIC ULCER
     Dosage: 40 MG, UNK
     Route: 048
  12. SENNOSIDE [Concomitant]
     Active Substance: SENNOSIDES
     Dosage: 24 MG, UNK
     Route: 048
  13. POLARAMINE [Concomitant]
     Active Substance: DEXCHLORPHENIRAMINE MALEATE
     Indication: ALLERGY PROPHYLAXIS
     Dosage: 4 MG, UNK
     Route: 048
  14. ALOXI [Concomitant]
     Active Substance: PALONOSETRON HYDROCHLORIDE
     Dosage: 0.75 MG, Q2WEEKS
     Route: 042
  15. GASTER [Concomitant]
     Active Substance: FAMOTIDINE
     Indication: PEPTIC ULCER
     Dosage: 20 MG, Q2WEEKS
     Route: 042

REACTIONS (1)
  - Anaphylactic reaction [Recovered/Resolved]

NARRATIVE: CASE EVENT DATE: 20170301
